FAERS Safety Report 13698789 (Version 1)
Quarter: 2017Q2

REPORT INFORMATION
  Report Type: Spontaneous
  Country: FR (occurrence: FR)
  Receive Date: 20170628
  Receipt Date: 20170628
  Transmission Date: 20170830
  Serious: Yes (Life-Threatening)
  Sender: FDA-Public Use
  Company Number: FR-SA-2017SA114742

PATIENT
  Age: 65 Year
  Sex: Female

DRUGS (21)
  1. CYTARABINE KABI [Suspect]
     Active Substance: CYTARABINE
     Indication: ACUTE MYELOID LEUKAEMIA
     Route: 041
     Dates: start: 20170603, end: 20170607
  2. BUSILVEX [Suspect]
     Active Substance: BUSULFAN
     Indication: ACUTE MYELOID LEUKAEMIA
     Route: 041
     Dates: start: 20170612, end: 20170613
  3. STILNOX [Concomitant]
     Active Substance: ZOLPIDEM TARTRATE
     Indication: INSOMNIA
     Route: 065
  4. CICLOSPORIN [Concomitant]
     Active Substance: CYCLOSPORINE
     Route: 042
  5. CELLCEPT [Concomitant]
     Active Substance: MYCOPHENOLATE MOFETIL\MYCOPHENOLATE MOFETIL HYDROCHLORIDE
     Route: 042
  6. CRESTOR [Concomitant]
     Active Substance: ROSUVASTATIN CALCIUM
     Route: 065
  7. THYMOGLOBULINE [Suspect]
     Active Substance: LAPINE T-LYMPHOCYTE IMMUNE GLOBULIN
     Indication: ACUTE MYELOID LEUKAEMIA
     Route: 041
     Dates: start: 20170613, end: 20170614
  8. AMLOR [Concomitant]
     Active Substance: AMLODIPINE BESYLATE
     Route: 065
  9. ZELITREX [Concomitant]
     Active Substance: VALACYCLOVIR HYDROCHLORIDE
     Route: 065
  10. VITAMIN K1 [Concomitant]
     Active Substance: PHYTONADIONE
     Route: 065
  11. POTASSIUM CHLORIDE. [Concomitant]
     Active Substance: POTASSIUM CHLORIDE
     Route: 065
  12. AXEPIM [Concomitant]
     Active Substance: CEFEPIME HYDROCHLORIDE
     Route: 042
  13. ZELITREX [Concomitant]
     Active Substance: VALACYCLOVIR HYDROCHLORIDE
     Route: 048
  14. ZOPHREN [Concomitant]
     Active Substance: ONDANSETRON
     Route: 042
  15. CALCIUM CHLORIDE. [Concomitant]
     Active Substance: CALCIUM CHLORIDE
     Route: 065
  16. EVOLTRA [Suspect]
     Active Substance: CLOFARABINE
     Indication: ACUTE MYELOID LEUKAEMIA
     Route: 041
     Dates: start: 20170603, end: 20170607
  17. ENDOXAN [Suspect]
     Active Substance: CYCLOPHOSPHAMIDE
     Indication: ACUTE MYELOID LEUKAEMIA
     Route: 041
     Dates: start: 20170611, end: 20170611
  18. INEXIUM [Concomitant]
     Active Substance: ESOMEPRAZOLE
     Route: 065
  19. GYDRELLE [Concomitant]
     Route: 065
  20. TOPALGIC (FRANCE) [Concomitant]
     Active Substance: TRAMADOL
     Indication: PAIN
     Route: 065
  21. PHOCYTAN [Concomitant]
     Active Substance: .ALPHA.-GLUCOSE-1-PHOSPHATE
     Dosage: DOSE: 2 AMPOULES
     Route: 065

REACTIONS (1)
  - Myocarditis [Recovering/Resolving]

NARRATIVE: CASE EVENT DATE: 20170615
